FAERS Safety Report 15394544 (Version 1)
Quarter: 2018Q3

REPORT INFORMATION
  Report Type: Report from Study
  Country: None (occurrence: US)
  Receive Date: 20180918
  Receipt Date: 20180918
  Transmission Date: 20181010
  Serious: Yes (Hospitalization, Disabling)
  Sender: FDA-Public Use
  Company Number: US-ABBVIE-18K-163-2374655-00

PATIENT
  Sex: Female

DRUGS (2)
  1. HUMIRA [Suspect]
     Active Substance: ADALIMUMAB
     Dosage: SINCE DAY 8
     Route: 058
     Dates: start: 201805
  2. HUMIRA [Suspect]
     Active Substance: ADALIMUMAB
     Indication: PSORIASIS
     Dosage: DAY 1
     Route: 058
     Dates: start: 201804, end: 201804

REACTIONS (9)
  - Pain of skin [Not Recovered/Not Resolved]
  - Drug ineffective [Recovering/Resolving]
  - Pruritus [Recovering/Resolving]
  - Skin irritation [Not Recovered/Not Resolved]
  - Grip strength decreased [Unknown]
  - Paraesthesia [Unknown]
  - Blood glucose increased [Unknown]
  - Syncope [Unknown]
  - Transient ischaemic attack [Unknown]

NARRATIVE: CASE EVENT DATE: 2018
